FAERS Safety Report 7138527-4 (Version None)
Quarter: 2010Q4

REPORT INFORMATION
  Report Type: 
  Country: None (occurrence: None)
  Receive Date: 20101118
  Receipt Date: 20101103
  Transmission Date: 20110411
  Serious: Yes (Other)
  Sender: FDA-Public Use
  Company Number: 1000017275

PATIENT
  Age: 83 Year
  Sex: Female

DRUGS (7)
  1. CITALOPRAM HYDROBROMIDE [Suspect]
     Indication: ANXIETY
     Dosage: 10 MG (10 MG, 1 IN 1 D), ORAL
     Route: 048
  2. OMEPRAZOLE [Suspect]
     Indication: DYSPEPSIA
     Dosage: 20 (20 MG, 1 IN 1 D), ORAL
     Route: 048
     Dates: end: 20101017
  3. BENDROFLUAZIDE [Concomitant]
  4. CIPROFLOXACIN [Concomitant]
  5. FLECAINIDE [Concomitant]
  6. MOVICOL (MACROGOL, POLYETHYLENE GYCOL, POTASSIUM CHLORIDE, SODIUM BICA [Concomitant]
  7. ZOPICLONE [Concomitant]

REACTIONS (2)
  - ANGIOEDEMA [None]
  - DRUG INTERACTION [None]
